FAERS Safety Report 5167747-3 (Version None)
Quarter: 2006Q4

REPORT INFORMATION
  Report Type: 
  Country: None (occurrence: None)
  Receive Date: 20061208
  Receipt Date: 20061201
  Transmission Date: 20070319
  Serious: Yes (Other)
  Sender: FDA-Public Use
  Company Number: US-JNJFOC-20061200877

PATIENT
  Sex: Female

DRUGS (12)
  1. INFLIXIMAB [Suspect]
     Indication: RHEUMATOID ARTHRITIS
     Route: 042
  2. PREDNISONE TAB [Concomitant]
  3. IMURAN [Concomitant]
  4. TIZAC [Concomitant]
  5. ZESTRIL [Concomitant]
  6. CARDURA [Concomitant]
  7. FOLIC ACID [Concomitant]
  8. CARAFATE [Concomitant]
  9. FORTEO [Concomitant]
  10. HUMIRA [Concomitant]
     Dosage: EVERY THREE WEEKS
  11. TUMS [Concomitant]
     Dosage: DAILY
  12. MAALOX FAST BLOCKER [Concomitant]
     Dosage: DAILY

REACTIONS (1)
  - BASAL CELL CARCINOMA [None]
